FAERS Safety Report 5921581-2 (Version None)
Quarter: 2008Q4

REPORT INFORMATION
  Report Type: 
  Country: None (occurrence: None)
  Receive Date: 20081015
  Receipt Date: 20081015
  Transmission Date: 20090506
  Serious: Yes (Hospitalization)
  Sender: FDA-Public Use
  Company Number: None

PATIENT
  Age: 88 Year
  Sex: Female
  Weight: 81.1939 kg

DRUGS (1)
  1. CIPROFLOXACIN HCL [Suspect]
     Dosage: 2 TIMES DAILY 10 DAYS

REACTIONS (3)
  - COLONIC OBSTRUCTION [None]
  - DIVERTICULITIS [None]
  - VERTIGO [None]
